FAERS Safety Report 4310362-1 (Version None)
Quarter: 2004Q1

REPORT INFORMATION
  Report Type: 
  Country: None (occurrence: None)
  Receive Date: 20040302
  Receipt Date: 20040210
  Transmission Date: 20041129
  Serious: No
  Sender: FDA-Public Use
  Company Number: A01200400798

PATIENT
  Age: 34 Year
  Sex: Female

DRUGS (1)
  1. DANAZOL [Suspect]
     Indication: ENDOMETRIOSIS
     Route: 048

REACTIONS (2)
  - OVARIAN ADENOMA [None]
  - OVARIAN CYST [None]
